FAERS Safety Report 10182956 (Version 1)
Quarter: 2014Q2

REPORT INFORMATION
  Report Type: Spontaneous
  Country: FR (occurrence: FR)
  Receive Date: 20140520
  Receipt Date: 20140520
  Transmission Date: 20141212
  Serious: Yes (Death, Life-Threatening, Other)
  Sender: FDA-Public Use
  Company Number: FR-PFIZER INC-2014134157

PATIENT
  Age: 68 Year
  Sex: Female

DRUGS (17)
  1. LYRICA [Suspect]
     Dosage: 50 MG, DAILY
     Route: 048
     Dates: start: 20131215, end: 20131216
  2. MORPHINE SULFATE [Suspect]
     Indication: POSTOPERATIVE ANALGESIA
     Dosage: 7 MG, UNK
     Route: 042
     Dates: start: 20131216, end: 20131216
  3. MORPHINE SULFATE [Suspect]
     Dosage: 200 UG, UNK
     Route: 037
     Dates: start: 20131216, end: 20131216
  4. DETENSIEL [Suspect]
     Indication: HYPERTENSION
     Dosage: 10 MG, 1X/DAY
     Route: 048
     Dates: end: 20131216
  5. INEXIUM [Suspect]
     Dosage: 40 MG, DAILY
     Route: 048
     Dates: start: 20131215, end: 20131216
  6. LIDOCAINE AGUETTANT [Suspect]
     Indication: PERIOPERATIVE ANALGESIA
     Dosage: 70 MG BOLUS THEN 100 MG PER HOUR ID EST 270 MG (ELECTRIC SYRINGE PUMP FROM 10.40 AM TO 1.10 PM)
     Route: 042
     Dates: start: 20131216, end: 20131216
  7. PROPOFOL ^FRESENIUS^ [Suspect]
     Indication: INDUCTION OF ANAESTHESIA
     Dosage: UNK
     Route: 042
     Dates: start: 20131216, end: 20131216
  8. ULTIVA [Suspect]
     Indication: INDUCTION OF ANAESTHESIA
     Dosage: UNK
     Route: 040
     Dates: start: 20131216, end: 20131216
  9. ATRACURIUM HOSPIRA [Suspect]
     Indication: NEUROMUSCULAR BLOCKING THERAPY
     Dosage: 50 MG AT 8.30 AM AND 10 MG AT 9.50 AM
     Route: 040
     Dates: start: 20131216, end: 20131216
  10. KETAMINE ^PANPHARMA^ [Suspect]
     Indication: PERIOPERATIVE ANALGESIA
     Dosage: 42 MG AT 8.35 AM THEN 10 MG PER HOUR FROM 10.20 AM TO THE END OF SURGERY
     Route: 040
     Dates: start: 20131216, end: 20131216
  11. CEFAZOLIN MYLAN [Suspect]
     Indication: ANTIBIOTIC PROPHYLAXIS
     Dosage: 2 G AT 8.30 AM THEN 1 G AT 12:30 PM
     Route: 042
     Dates: start: 20131216, end: 20131216
  12. DEXAMETHASONE [Suspect]
     Indication: PROCEDURAL NAUSEA
     Dosage: UNK
     Route: 042
     Dates: start: 20131216, end: 20131216
  13. PARACETAMOL MACOPHARMA [Suspect]
     Indication: POSTOPERATIVE ANALGESIA
     Dosage: 1 G, UNK
     Route: 042
     Dates: start: 20131216, end: 20131216
  14. KETOPROFEN MEDAC [Suspect]
     Indication: POSTOPERATIVE ANALGESIA
     Dosage: 100 MG, UNK
     Route: 042
     Dates: start: 20131216, end: 20131216
  15. ACUPAN [Suspect]
     Indication: POSTOPERATIVE ANALGESIA
     Dosage: 20 MG, UNK
     Route: 042
     Dates: start: 20131216, end: 20131216
  16. ATARAX [Concomitant]
     Dosage: 12.5MG IN THE EVENING
  17. FOSAVANCE [Concomitant]
     Dosage: 1 DF, WEEKLY

REACTIONS (2)
  - Cardiac arrest [Fatal]
  - Pulseless electrical activity [Recovered/Resolved]
